FAERS Safety Report 7983249-0 (Version None)
Quarter: 2011Q4

REPORT INFORMATION
  Report Type: 
  Country: None (occurrence: None)
  Receive Date: 20111215
  Receipt Date: 20111212
  Transmission Date: 20120403
  Serious: Yes (Life-Threatening, Other)
  Sender: FDA-Public Use
  Company Number: PHHY2011JP91480

PATIENT
  Sex: Male
  Weight: 51 kg

DRUGS (11)
  1. ASPIRIN [Concomitant]
     Dosage: 100 MG,
     Dates: end: 20111020
  2. HALTHROW OD [Concomitant]
     Dosage: 0.2 MG,
     Route: 048
     Dates: end: 20110728
  3. AFINITOR [Suspect]
     Indication: METASTATIC RENAL CELL CARCINOMA
     Dosage: 5 MG, DAILY
     Route: 048
     Dates: start: 20110616, end: 20110728
  4. LOSARTAN POTASSIUM AND HYDROCHLOROTHIAZIDE [Concomitant]
     Dosage: 1 DF,
     Route: 048
     Dates: start: 20110729, end: 20111020
  5. AFINITOR [Suspect]
     Dosage: 5 MG, DAILY
     Route: 048
     Dates: start: 20110803
  6. AFINITOR [Suspect]
     Dosage: 5 MG, DAILY
     Route: 048
     Dates: start: 20111012, end: 20111020
  7. ADALAT [Concomitant]
     Dosage: 20 MG,
     Route: 048
     Dates: start: 20110728
  8. TAMSULOSIN HCL [Concomitant]
     Dosage: 2 MG,
     Route: 048
     Dates: start: 20110729, end: 20111020
  9. SORAFENIB TOSILATE [Concomitant]
     Indication: METASTATIC RENAL CELL CARCINOMA
     Dosage: 800 MG, UNK
     Route: 048
     Dates: start: 20100810, end: 20110601
  10. ASPIRIN [Concomitant]
     Dosage: 100 MG,
     Route: 048
  11. ASPIRIN [Concomitant]
     Dosage: 150 MG,
     Route: 048

REACTIONS (7)
  - HAEMOGLOBIN DECREASED [None]
  - BLOOD CREATININE INCREASED [None]
  - HAEMATOCRIT DECREASED [None]
  - LYMPHOCYTE COUNT DECREASED [None]
  - BLOOD UREA INCREASED [None]
  - C-REACTIVE PROTEIN INCREASED [None]
  - EOSINOPHIL COUNT INCREASED [None]
